FAERS Safety Report 16310338 (Version 3)
Quarter: 2019Q4

REPORT INFORMATION
  Report Type: Report from Study
  Country: PA (occurrence: PA)
  Receive Date: 20190514
  Receipt Date: 20191017
  Transmission Date: 20200122
  Serious: Yes (Other)
  Sender: FDA-Public Use
  Company Number: PHHY2019PA108748

PATIENT
  Age: 83 Year
  Sex: Female
  Weight: 79.37 kg

DRUGS (3)
  1. CARDIOASPIRIN [Concomitant]
     Active Substance: ASPIRIN
     Indication: PRODUCT USED FOR UNKNOWN INDICATION
     Dosage: 1 DF, QD, 4 MONTHS AGO
     Route: 065
  2. EXFORGE HCT [Suspect]
     Active Substance: AMLODIPINE BESYLATE\HYDROCHLOROTHIAZIDE\VALSARTAN
     Indication: HYPERTENSION
     Dosage: 1 DF, QD (VALSARTAN 320 MG, AMLODIPINE 10 MG, HYDROCHLOROTHIAZIDE 25 MG))
     Route: 065
  3. CLOPIDOGREL [Concomitant]
     Active Substance: CLOPIDOGREL BISULFATE
     Indication: THROMBOSIS
     Dosage: 1 DF, QD
     Route: 065
     Dates: start: 201812

REACTIONS (4)
  - Emotional disorder [Unknown]
  - Vascular occlusion [Recovering/Resolving]
  - Blood pressure increased [Unknown]
  - Infarction [Recovering/Resolving]

NARRATIVE: CASE EVENT DATE: 20181130
